FAERS Safety Report 9697372 (Version 2)
Quarter: 2016Q3

REPORT INFORMATION
  Report Type: Spontaneous
  Country: US (occurrence: US)
  Receive Date: 20131120
  Receipt Date: 20160707
  Transmission Date: 20161109
  Serious: Yes (Other)
  Sender: FDA-Public Use
  Company Number: US-MERCK-1311USA002629

PATIENT
  Sex: Male
  Weight: 92.97 kg

DRUGS (2)
  1. TRAMADOL HYDROCHLORIDE. [Concomitant]
     Active Substance: TRAMADOL HYDROCHLORIDE
     Indication: PAIN
     Dosage: UNK, PRN
  2. PEGINTRON [Suspect]
     Active Substance: PEGINTERFERON ALFA-2B
     Indication: HEPATITIS C
     Dosage: UNK
     Dates: end: 201005

REACTIONS (7)
  - Pruritus [Unknown]
  - Aphasia [Not Recovered/Not Resolved]
  - Daydreaming [Unknown]
  - Paraesthesia [Unknown]
  - Psoriasis [Unknown]
  - Psoriatic arthropathy [Unknown]
  - Skin discolouration [Unknown]

NARRATIVE: CASE EVENT DATE: 2010
